FAERS Safety Report 5708707-0 (Version None)
Quarter: 2008Q2

REPORT INFORMATION
  Report Type: 
  Country: None (occurrence: None)
  Receive Date: 20080417
  Receipt Date: 20080321
  Transmission Date: 20081010
  Serious: No
  Sender: FDA-Public Use
  Company Number: US-BOEHRINGER INGELHEIM GMBH, GERMANY-2008-BP-04499BP

PATIENT
  Age: 45 Year
  Sex: Male

DRUGS (4)
  1. FLOMAX [Suspect]
     Indication: BENIGN PROSTATIC HYPERPLASIA
     Route: 048
     Dates: start: 20071001
  2. FLOMAX [Suspect]
     Indication: URINE FLOW DECREASED
  3. ELAVIL [Concomitant]
  4. ELMIRON [Concomitant]

REACTIONS (1)
  - HYPERHIDROSIS [None]
